FAERS Safety Report 4711549-6 (Version None)
Quarter: 2005Q3

REPORT INFORMATION
  Report Type: 
  Country: None (occurrence: None)
  Receive Date: 20050708
  Receipt Date: 20050708
  Transmission Date: 20060218
  Serious: Yes (Hospitalization)
  Sender: FDA-Public Use
  Company Number: None

PATIENT
  Age: 84 Year
  Sex: Male
  Weight: 76.6 kg

DRUGS (2)
  1. LINEZOLID [Suspect]
     Indication: ENTEROCOCCAL INFECTION
     Dosage: 1200MG, 600MG Q12, INTRAVEN
     Route: 042
     Dates: start: 20050424, end: 20050501
  2. LINEZOLID [Suspect]
     Indication: URINARY TRACT INFECTION
     Dosage: 1200MG, 600MG Q12, INTRAVEN
     Route: 042
     Dates: start: 20050424, end: 20050501

REACTIONS (2)
  - ANAEMIA [None]
  - THROMBOCYTOPENIA [None]
